FAERS Safety Report 8555572-2 (Version None)
Quarter: 2012Q3

REPORT INFORMATION
  Report Type: 
  Country: None (occurrence: None)
  Receive Date: 20120731
  Receipt Date: 20111017
  Transmission Date: 20120928
  Serious: No
  Sender: FDA-Public Use
  Company Number: US-ASTRAZENECA-2010SE22315

PATIENT
  Age: 67 Year
  Sex: Female

DRUGS (3)
  1. SEROQUEL [Suspect]
     Dosage: 2 TABLETS AM, 1 TABLET AT NOON, 1 TABLET AT 4PM AND 3 TABLET HS
     Route: 048
  2. SEROQUEL [Suspect]
     Route: 048
  3. SEROQUEL [Suspect]
     Route: 048
     Dates: start: 20100101, end: 20100101

REACTIONS (21)
  - INADEQUATE DIET [None]
  - DRUG DOSE OMISSION [None]
  - NERVOUSNESS [None]
  - AFFECT LABILITY [None]
  - FALL [None]
  - LIMB INJURY [None]
  - EMOTIONAL DISTRESS [None]
  - MALAISE [None]
  - CRYING [None]
  - ABNORMAL BEHAVIOUR [None]
  - MEMORY IMPAIRMENT [None]
  - ADVERSE DRUG REACTION [None]
  - BALANCE DISORDER [None]
  - PANIC ATTACK [None]
  - TREMOR [None]
  - ANXIETY [None]
  - FEELING ABNORMAL [None]
  - CONTUSION [None]
  - GAIT DISTURBANCE [None]
  - DEPRESSED MOOD [None]
  - DIZZINESS [None]
